FAERS Safety Report 11689027 (Version 1)
Quarter: 2015Q4

REPORT INFORMATION
  Report Type: Spontaneous
  Country: FR (occurrence: FR)
  Receive Date: 20151102
  Receipt Date: 20151102
  Transmission Date: 20160304
  Serious: Yes (Death)
  Sender: FDA-Public Use
  Company Number: FR-009507513-1510FRA013117

PATIENT
  Age: 93 Year
  Sex: Female

DRUGS (4)
  1. PHOSPHO-SODA [Suspect]
     Active Substance: SODIUM PHOSPHATE, DIBASIC\SODIUM PHOSPHATE, MONOBASIC
     Dosage: UNK
     Route: 048
  2. BISOPROLOL FUMARATE. [Suspect]
     Active Substance: BISOPROLOL FUMARATE
     Dosage: 10 MG, QD (1X PER 1 DAY)
     Route: 048
  3. POLYETHYLENE GLYCOL 3350. [Suspect]
     Active Substance: POLYETHYLENE GLYCOL 3350
     Indication: PRODUCT USED FOR UNKNOWN INDICATION
     Dosage: 2 DF, QD (1X PER 1 DAY)
     Route: 048
  4. ZOCOR [Suspect]
     Active Substance: SIMVASTATIN
     Dosage: 20 MG, QD (1X PER 1 DAY)
     Route: 048

REACTIONS (9)
  - Cardio-respiratory arrest [Fatal]
  - Diarrhoea [Fatal]
  - Acute myocardial infarction [Fatal]
  - Thrombosis in device [Fatal]
  - Hypernatraemia [Fatal]
  - Dehydration [Fatal]
  - Cardiogenic shock [Fatal]
  - Hypokalaemia [Fatal]
  - Ventricular arrhythmia [Fatal]
